FAERS Safety Report 14339629 (Version 2)
Quarter: 2018Q4

REPORT INFORMATION
  Report Type: Spontaneous
  Country: HU (occurrence: HU)
  Receive Date: 20171230
  Receipt Date: 20181023
  Transmission Date: 20190204
  Serious: Yes (Other)
  Sender: FDA-Public Use
  Company Number: HU-AUROBINDO-AUR-APL-2017-48432

PATIENT
  Age: 87 Year
  Sex: Male

DRUGS (6)
  1. ATORVASTATIN [Suspect]
     Active Substance: ATORVASTATIN
     Indication: LIPIDS ABNORMAL
     Dosage: 20 MILLIGRAM DAILY
  2. RAMIPRIL. [Suspect]
     Active Substance: RAMIPRIL
     Indication: HYPERTONIA
     Dosage: UNK
     Route: 065
  3. AMLODIPINE [Suspect]
     Active Substance: AMLODIPINE BESYLATE
     Indication: HYPERTONIA
     Dosage: 5 MILLIGRAM
  4. DOXAZOSIN [Suspect]
     Active Substance: DOXAZOSIN\DOXAZOSIN MESYLATE
     Indication: BENIGN PROSTATIC HYPERPLASIA
     Dosage: 4 MG
  5. DOXAZOSIN [Suspect]
     Active Substance: DOXAZOSIN\DOXAZOSIN MESYLATE
     Indication: HYPERTENSION
     Dosage: 2 MILLIGRAM
  6. FINASTERIDE. [Suspect]
     Active Substance: FINASTERIDE
     Indication: BENIGN PROSTATIC HYPERPLASIA
     Dosage: UNK
     Route: 065

REACTIONS (4)
  - Stenosis [Unknown]
  - Arteriosclerosis [Unknown]
  - Orthostatic hypotension [Recovered/Resolved]
  - Renal impairment [Recovered/Resolved]

NARRATIVE: CASE EVENT DATE: 20150101
